FAERS Safety Report 16179861 (Version 1)
Quarter: 2019Q2

REPORT INFORMATION
  Report Type: Spontaneous
  Country: BR (occurrence: BR)
  Receive Date: 20190410
  Receipt Date: 20190410
  Transmission Date: 20190711
  Serious: Yes (Other)
  Sender: FDA-Public Use
  Company Number: BR-PFIZER INC-2013345380

PATIENT
  Age: 55 Year
  Sex: Female
  Weight: 57 kg

DRUGS (2)
  1. NORVASC [Suspect]
     Active Substance: AMLODIPINE BESYLATE
     Indication: HYPERTENSION
     Dosage: 5 MG (ONE TABLET), DAILY
     Dates: start: 2008
  2. OLMETEC [Suspect]
     Active Substance: OLMESARTAN MEDOXOMIL
     Indication: HYPERTENSION
     Dosage: 20 MG (ONE TABLET), DAILY
     Dates: start: 2008

REACTIONS (2)
  - Neck pain [Unknown]
  - Drug dependence [Unknown]
